FAERS Safety Report 25775727 (Version 1)
Quarter: 2025Q3

REPORT INFORMATION
  Report Type: Spontaneous
  Country: EU (occurrence: EU)
  Receive Date: 20250909
  Receipt Date: 20250909
  Transmission Date: 20251020
  Serious: Yes (Hospitalization)
  Sender: ACCORD
  Company Number: None

PATIENT
  Age: 67 Year
  Sex: Male

DRUGS (11)
  1. QUETIAPINE [Suspect]
     Active Substance: QUETIAPINE
     Indication: Euphoric mood
     Dates: start: 20250621, end: 20250622
  2. ARIPIPRAZOLE [Concomitant]
     Active Substance: ARIPIPRAZOLE
  3. DESLORATADINE [Concomitant]
     Active Substance: DESLORATADINE
  4. DEXERYL [Concomitant]
  5. VOGALENE [Concomitant]
     Active Substance: METOPIMAZINE
  6. BROMAZEPAM [Concomitant]
     Active Substance: BROMAZEPAM
  7. PAROXETINE HYDROCHLORIDE [Concomitant]
     Active Substance: PAROXETINE HYDROCHLORIDE
  8. QUETIAPINE [Suspect]
     Active Substance: QUETIAPINE
     Indication: Euphoric mood
     Dates: start: 20250622, end: 20250623
  9. QUETIAPINE [Suspect]
     Active Substance: QUETIAPINE
     Indication: Euphoric mood
     Dates: start: 20250623, end: 20250626
  10. QUETIAPINE [Suspect]
     Active Substance: QUETIAPINE
     Indication: Euphoric mood
     Dates: start: 20250626, end: 20250627
  11. QUETIAPINE [Suspect]
     Active Substance: QUETIAPINE
     Indication: Euphoric mood
     Dates: start: 20250627, end: 20250708

REACTIONS (1)
  - Rash maculo-papular [Recovered/Resolved]

NARRATIVE: CASE EVENT DATE: 20250704
